FAERS Safety Report 20603467 (Version 2)
Quarter: 2022Q1

REPORT INFORMATION
  Report Type: Spontaneous
  Country: US (occurrence: US)
  Receive Date: 20220316
  Receipt Date: 20220331
  Transmission Date: 20220423
  Serious: Yes (Other)
  Sender: FDA-Public Use
  Company Number: US-PFIZER INC-202200358544

PATIENT
  Age: 72 Year
  Sex: Female
  Weight: 49.44 kg

DRUGS (5)
  1. ESTRING [Suspect]
     Active Substance: ESTRADIOL
     Indication: Vulvovaginal dryness
     Dosage: 2 MG, EVERY 3 MONTHS (VAGINAL RING, 2MG INSERTED VAGINALLY EVERY 90 DAYS)
     Route: 067
     Dates: start: 20220302
  2. SYNTHROID [Concomitant]
     Active Substance: LEVOTHYROXINE SODIUM
     Indication: Hypothyroidism
     Dosage: 75 UG, 1X/DAY
  3. ATORVASTATIN [Concomitant]
     Active Substance: ATORVASTATIN
     Indication: Low density lipoprotein increased
     Dosage: 10 MG, 1X/DAY
  4. HYDROCHLOROTHIAZIDE\LOSARTAN [Concomitant]
     Active Substance: HYDROCHLOROTHIAZIDE\LOSARTAN
     Indication: Blood pressure abnormal
     Dosage: 50MG/6.25MG , 1X/DAY
  5. ESTRADIOL\PROGESTERONE [Concomitant]
     Active Substance: ESTRADIOL\PROGESTERONE
     Indication: Type IIa hyperlipidaemia
     Dosage: 0.5MG/100MG, 1X/DAY

REACTIONS (2)
  - Dysmenorrhoea [Not Recovered/Not Resolved]
  - Vulvovaginal discomfort [Not Recovered/Not Resolved]

NARRATIVE: CASE EVENT DATE: 20220302
